FAERS Safety Report 17052800 (Version 1)
Quarter: 2019Q4

REPORT INFORMATION
  Report Type: Spontaneous
  Country: US (occurrence: US)
  Receive Date: 20191119
  Receipt Date: 20191119
  Transmission Date: 20200122
  Serious: Yes (Death)
  Sender: FDA-Public Use
  Company Number: None

PATIENT
  Age: 71 Year
  Sex: Female
  Weight: 85 kg

DRUGS (1)
  1. GADOTERIDOL INJECTION [Suspect]
     Active Substance: GADOTERIDOL
     Indication: MAGNETIC RESONANCE IMAGING
     Dosage: ?          OTHER FREQUENCY:ONCE;?
     Route: 042
     Dates: start: 20190703, end: 20190703

REACTIONS (4)
  - Dyspnoea [None]
  - Muscle tightness [None]
  - Pulse absent [None]
  - Disturbance in attention [None]

NARRATIVE: CASE EVENT DATE: 20190703
